FAERS Safety Report 7079079 (Version 4)
Quarter: 2013Q1

REPORT INFORMATION
  Report Type: Spontaneous
  Country: JP (occurrence: JP)
  Receive Date: 20090812
  Receipt Date: 20130122
  Transmission Date: 20140127
  Serious: Yes (Hospitalization, Disabling, Other)
  Sender: FDA-Public Use
  Company Number: JP-ASTRAZENECA-2009SE06821

PATIENT
  Age: 74 Year
  Sex: Male
  Weight: 46 kg

DRUGS (17)
  1. CASODEX [Suspect]
     Indication: PROSTATE CANCER
     Route: 048
     Dates: start: 200412, end: 200506
  2. CASODEX [Suspect]
     Indication: PROSTATE CANCER
     Route: 048
     Dates: start: 200606, end: 200711
  3. CASODEX [Suspect]
     Indication: PROSTATE CANCER
     Route: 048
     Dates: start: 20080904, end: 20090604
  4. BUP-4 [Suspect]
     Indication: PROSTATE CANCER
     Route: 048
     Dates: start: 20090205, end: 20090604
  5. ZOLADEX [Concomitant]
     Dosage: DOSE UNKNOWN
     Route: 058
     Dates: start: 200412, end: 200506
  6. ADOAIR [Concomitant]
     Dosage: DOSE UNKNOWN
     Route: 055
  7. SPIRIVA [Concomitant]
     Dosage: DOSE UNKNOWN
     Route: 055
     Dates: start: 20050304
  8. CLARITH [Concomitant]
     Indication: LOWER RESPIRATORY TRACT INFECTION
     Route: 048
     Dates: start: 20080109
  9. SINGULAIR [Concomitant]
     Route: 048
     Dates: start: 20050304
  10. MUCOSOLVAN L [Concomitant]
     Route: 048
     Dates: start: 20060106
  11. MUCOSTA [Concomitant]
     Indication: GASTRITIS
     Route: 048
     Dates: start: 20090220
  12. DIAMOX [Concomitant]
     Indication: RESPIRATORY ACIDOSIS
     Route: 048
     Dates: start: 20050325
  13. THEODUR [Concomitant]
     Route: 048
     Dates: start: 20050304
  14. ALFASULY [Concomitant]
     Route: 048
     Dates: start: 20090119
  15. FOSAMAC [Concomitant]
     Route: 048
     Dates: start: 20090119
  16. MAGMITT [Concomitant]
     Route: 048
     Dates: start: 20090302
  17. ALINAMIN-F [Concomitant]
     Indication: NEUROPATHY PERIPHERAL
     Route: 048
     Dates: start: 20081217

REACTIONS (3)
  - Leukoencephalopathy [Recovered/Resolved]
  - Spinal compression fracture [Unknown]
  - Gynaecomastia [Unknown]
